FAERS Safety Report 13273519 (Version 1)
Quarter: 2017Q1

REPORT INFORMATION
  Report Type: Report from Study
  Country: US (occurrence: CA)
  Receive Date: 20170227
  Receipt Date: 20170227
  Transmission Date: 20170428
  Serious: Yes (Other)
  Sender: FDA-Public Use
  Company Number: US-SUNOVION-2017SUN000808

PATIENT
  Age: 46 Year
  Sex: Female

DRUGS (20)
  1. XOLAIR [Suspect]
     Active Substance: OMALIZUMAB
     Dosage: UNK; REGIMEN #7
     Route: 058
     Dates: start: 20161121
  2. XOLAIR [Suspect]
     Active Substance: OMALIZUMAB
     Dosage: UNK; REGIMEN #8
     Route: 058
     Dates: start: 20161219
  3. XOLAIR [Suspect]
     Active Substance: OMALIZUMAB
     Indication: ASTHMA
     Dosage: 225 MG, BIW
     Route: 058
     Dates: start: 20151223
  4. XOLAIR [Suspect]
     Active Substance: OMALIZUMAB
     Dosage: UNK; REGIMEN #2
     Route: 058
     Dates: start: 20160428
  5. XOLAIR [Suspect]
     Active Substance: OMALIZUMAB
     Dosage: UNK; REGIMEN #4
     Route: 058
     Dates: start: 20160803
  6. SINGULAIR [Concomitant]
     Active Substance: MONTELUKAST SODIUM
     Dosage: UNK
  7. XOLAIR [Suspect]
     Active Substance: OMALIZUMAB
     Dosage: UNK; REGIMEN #5
     Route: 058
     Dates: start: 20160830
  8. XOLAIR [Suspect]
     Active Substance: OMALIZUMAB
     Dosage: UNK; REGIMEN #6
     Route: 058
     Dates: start: 20160927
  9. MONTELUKAST [Concomitant]
     Active Substance: MONTELUKAST SODIUM
     Dosage: UNK
  10. REACTINE [Concomitant]
     Active Substance: CETIRIZINE HYDROCHLORIDE
     Dosage: UNK
  11. OMNARIS [Concomitant]
     Active Substance: CICLESONIDE
     Dosage: UNK
  12. GLYCOPYRROLATE. [Suspect]
     Active Substance: GLYCOPYRROLATE
     Indication: PRODUCT USED FOR UNKNOWN INDICATION
     Dosage: 15 ?G, QD
     Route: 055
     Dates: start: 2014
  13. XOLAIR [Suspect]
     Active Substance: OMALIZUMAB
     Dosage: 300 MG, EVERY 4 WEEKS; REGIMEN #9
     Route: 058
  14. XOLAIR [Suspect]
     Active Substance: OMALIZUMAB
     Dosage: UNK
  15. XOLAIR [Suspect]
     Active Substance: OMALIZUMAB
     Dosage: UNK; REGIMEN #3
     Route: 058
     Dates: start: 20160526
  16. ALVESCO [Concomitant]
     Active Substance: CICLESONIDE
     Dosage: UNK
  17. XOLAIR [Suspect]
     Active Substance: OMALIZUMAB
     Dosage: UNK; REGIMEN #10
     Route: 058
     Dates: start: 20170117
  18. XOLAIR [Suspect]
     Active Substance: OMALIZUMAB
     Dosage: UNK; REGIMEN #11
     Route: 058
     Dates: start: 20170216
  19. ADVAIR HFA [Concomitant]
     Active Substance: FLUTICASONE PROPIONATE\SALMETEROL XINAFOATE
     Dosage: UNK 50/250 UG
  20. PARIET [Concomitant]
     Active Substance: RABEPRAZOLE SODIUM
     Dosage: UNK

REACTIONS (20)
  - Pyrexia [Unknown]
  - Nasopharyngitis [Unknown]
  - Heart rate increased [Unknown]
  - Lower respiratory tract infection [Unknown]
  - Asthma [Unknown]
  - Respiratory distress [Unknown]
  - Respiratory tract congestion [Unknown]
  - Malaise [Unknown]
  - Drug ineffective [Unknown]
  - Cough [Unknown]
  - Urticaria [Recovering/Resolving]
  - Viral infection [Unknown]
  - Productive cough [Unknown]
  - Rhinorrhoea [Unknown]
  - Oropharyngeal pain [Unknown]
  - Wheezing [Unknown]
  - Nasal congestion [Unknown]
  - Secretion discharge [Unknown]
  - Blood pressure increased [Unknown]
  - Dyspnoea [Unknown]

NARRATIVE: CASE EVENT DATE: 2016
